FAERS Safety Report 5039545-2 (Version None)
Quarter: 2006Q2

REPORT INFORMATION
  Report Type: 
  Country: None (occurrence: None)
  Receive Date: 20060629
  Receipt Date: 20060605
  Transmission Date: 20061013
  Serious: Yes (Hospitalization, Disabling)
  Sender: FDA-Public Use
  Company Number: AU-BOEHRINGER INGELHEIM PHARMACEUTICALS, INC.-2006-BP-06357AU

PATIENT
  Sex: Female
  Weight: 150 kg

DRUGS (2)
  1. MOBIC [Suspect]
     Indication: POLYARTHRITIS
     Route: 048
     Dates: start: 20060101, end: 20060101
  2. PLAQUENIL [Concomitant]
     Route: 048

REACTIONS (2)
  - ABDOMINAL PAIN [None]
  - RECTAL HAEMORRHAGE [None]
